FAERS Safety Report 23307034 (Version 2)
Quarter: 2024Q1

REPORT INFORMATION
  Report Type: Spontaneous
  Country: GB (occurrence: GB)
  Receive Date: 20231218
  Receipt Date: 20240125
  Transmission Date: 20240410
  Serious: Yes (Other)
  Sender: FDA-Public Use
  Company Number: GB-MHRA-TPP8966986C15161973YC1699635684087

PATIENT
  Age: 84 Year
  Sex: Male
  Weight: 80 kg

DRUGS (7)
  1. NITROFURANTOIN [Suspect]
     Active Substance: NITROFURANTOIN
     Indication: Ill-defined disorder
     Dosage: 100 MILLIGRAM, TWO TIMES A DAY
     Route: 065
     Dates: start: 20231016, end: 20231023
  2. NITROFURANTOIN [Suspect]
     Active Substance: NITROFURANTOIN
     Dosage: UNK
     Route: 065
     Dates: start: 20231110
  3. ALFUZOSIN [Concomitant]
     Active Substance: ALFUZOSIN
     Indication: Ill-defined disorder
     Dosage: 1 DOSAGE FORM, DAILY
     Route: 065
     Dates: start: 20230626
  4. FINASTERIDE [Concomitant]
     Active Substance: FINASTERIDE
     Indication: Ill-defined disorder
     Dosage: 1 DOSAGE FORM, DAILY
     Route: 065
     Dates: start: 20230626
  5. LANSOPRAZOLE [Concomitant]
     Active Substance: LANSOPRAZOLE
     Indication: Ill-defined disorder
     Dosage: EACH MORNING
     Route: 065
     Dates: start: 20230626
  6. MIRABEGRON [Concomitant]
     Active Substance: MIRABEGRON
     Indication: Ill-defined disorder
     Dosage: 1 DOSAGE FORM, DAILY
     Route: 065
     Dates: start: 20230626
  7. NITROFURANTOIN [Concomitant]
     Active Substance: NITROFURANTOIN
     Indication: Ill-defined disorder
     Dosage: 1 DOSAGE FORM, TWO TIMES A DAY, FOR SEVEN DAYS
     Route: 065
     Dates: start: 20231016, end: 20231023

REACTIONS (3)
  - Liver injury [Recovered/Resolved]
  - Liver function test increased [Recovered/Resolved]
  - Pyelonephritis [Unknown]
